FAERS Safety Report 5129931-4 (Version None)
Quarter: 2006Q4

REPORT INFORMATION
  Report Type: 
  Country: None (occurrence: None)
  Receive Date: 20061018
  Receipt Date: 20060913
  Transmission Date: 20070319
  Serious: Yes (Life-Threatening, Hospitalization)
  Sender: FDA-Public Use
  Company Number: JP-BRISTOL-MYERS SQUIBB COMPANY-13516539

PATIENT
  Age: 27 Year
  Sex: Female

DRUGS (2)
  1. GATIFLO [Suspect]
     Indication: PYREXIA
     Route: 048
     Dates: start: 20060821, end: 20060822
  2. LOXONIN [Suspect]
     Indication: PYREXIA
     Route: 048
     Dates: start: 20060821, end: 20060822

REACTIONS (2)
  - LIVER DISORDER [None]
  - STEVENS-JOHNSON SYNDROME [None]
